FAERS Safety Report 10328155 (Version 1)
Quarter: 2014Q3

REPORT INFORMATION
  Report Type: Spontaneous
  Country: FR (occurrence: FR)
  Receive Date: 20140721
  Receipt Date: 20140721
  Transmission Date: 20150326
  Serious: Yes (Hospitalization)
  Sender: FDA-Public Use
  Company Number: PHHY2014FR087921

PATIENT
  Sex: Male

DRUGS (4)
  1. RIAMET [Suspect]
     Active Substance: ARTEMETHER\LUMEFANTRINE
     Dosage: UNK UKN, UNK
     Route: 048
     Dates: start: 20140508, end: 20140511
  2. INEXIUM//ESOMEPRAZOLE SODIUM [Suspect]
     Active Substance: ESOMEPRAZOLE
     Dosage: UNK UKN, UNK
     Route: 048
     Dates: start: 20140505
  3. ARTESUNATE [Suspect]
     Active Substance: ARTESUNATE
     Indication: MALARIA
     Dosage: UNK UKN, UNK
     Route: 042
     Dates: start: 20140505, end: 20140507
  4. CALCIPARINE [Concomitant]
     Active Substance: HEPARIN CALCIUM
     Dosage: UNK UKN, UNK
     Dates: start: 20140511

REACTIONS (1)
  - Haemolytic anaemia [Not Recovered/Not Resolved]
